FAERS Safety Report 5415042-7 (Version None)
Quarter: 2007Q3

REPORT INFORMATION
  Report Type: 
  Country: None (occurrence: None)
  Receive Date: 20070815
  Receipt Date: 20070425
  Transmission Date: 20080115
  Serious: No
  Sender: FDA-Public Use
  Company Number: A0648727A

PATIENT
  Age: 62 Year
  Sex: Male

DRUGS (4)
  1. COREG CR [Suspect]
     Indication: HYPERTENSION
     Dosage: 20MG PER DAY
     Route: 048
     Dates: start: 20070418
  2. HYZAAR [Concomitant]
  3. XANAX [Concomitant]
  4. POTASSIUM SUPPLEMENTS [Concomitant]

REACTIONS (1)
  - DRUG INEFFECTIVE [None]
